FAERS Safety Report 11055671 (Version 1)
Quarter: 2015Q2

REPORT INFORMATION
  Report Type: Spontaneous
  Country: US (occurrence: None)
  Receive Date: 20150421
  Receipt Date: 20150421
  Transmission Date: 20150821
  Serious: Yes (Other)
  Sender: FDA-Public Use
  Company Number: None

PATIENT
  Age: 58 Year
  Sex: Female

DRUGS (1)
  1. HUMIRA [Suspect]
     Active Substance: ADALIMUMAB
     Indication: RHEUMATOID ARTHRITIS
     Dosage: 40MG, Q O WEEK, SQ
     Route: 058
     Dates: start: 20110421, end: 20150313

REACTIONS (2)
  - Drug ineffective [None]
  - Onychomycosis [None]

NARRATIVE: CASE EVENT DATE: 201503
